FAERS Safety Report 9808755 (Version 1)
Quarter: 2014Q1

REPORT INFORMATION
  Report Type: Spontaneous
  Country: US (occurrence: US)
  Receive Date: 20140110
  Receipt Date: 20140110
  Transmission Date: 20141002
  Serious: Yes (Other)
  Sender: FDA-Public Use
  Company Number: US-ACTAVIS-2013-24337

PATIENT
  Age: 26 Year
  Sex: Male

DRUGS (5)
  1. NORCO 10/325 (WATSON LABORATORIES) [Suspect]
     Indication: BREAKTHROUGH PAIN
     Dosage: UNK UNK, PRN
     Route: 065
  2. LISINOPRIL [Concomitant]
     Indication: PRODUCT USED FOR UNKNOWN INDICATION
     Dosage: UNK
     Route: 065
  3. PRILOSEC                           /00661201/ [Concomitant]
     Indication: PRODUCT USED FOR UNKNOWN INDICATION
     Dosage: UNK
     Route: 065
  4. IBUPROFEN [Concomitant]
     Indication: PRODUCT USED FOR UNKNOWN INDICATION
     Dosage: 800 MG, UNK
     Route: 065
  5. BUTRANS                            /00444001/ [Concomitant]
     Indication: PRODUCT USED FOR UNKNOWN INDICATION
     Dosage: 10 MCG PATCH
     Route: 065
     Dates: end: 2013

REACTIONS (4)
  - Road traffic accident [Unknown]
  - Syncope [Unknown]
  - Laceration [Unknown]
  - Mental status changes [Recovered/Resolved]
